FAERS Safety Report 5869345-2 (Version None)
Quarter: 2008Q3

REPORT INFORMATION
  Report Type: 
  Country: None (occurrence: None)
  Receive Date: 20080828
  Receipt Date: 20080818
  Transmission Date: 20090109
  Serious: Yes (Death, Hospitalization)
  Sender: FDA-Public Use
  Company Number: 230234J08BRA

PATIENT
  Age: 21 Year
  Sex: Female

DRUGS (1)
  1. REBIF [Suspect]
     Dosage: 22 MCG, 3 IN 1 WEEKS
     Dates: start: 20041201, end: 20080601

REACTIONS (4)
  - ACUTE RESPIRATORY FAILURE [None]
  - CARDIAC ARREST [None]
  - LUNG DISORDER [None]
  - PYREXIA [None]
